FAERS Safety Report 10425387 (Version 1)
Quarter: 2014Q3

REPORT INFORMATION
  Report Type: Spontaneous
  Country: FR (occurrence: FR)
  Receive Date: 20140902
  Receipt Date: 20140902
  Transmission Date: 20150326
  Serious: Yes (Congenital Anomaly)
  Sender: FDA-Public Use
  Company Number: FR-ASTRAZENECA-2014SE64789

PATIENT
  Sex: Male
  Weight: 3.6 kg

DRUGS (18)
  1. ZOPHREN [Suspect]
     Active Substance: ONDANSETRON
     Route: 064
     Dates: start: 201007
  2. HALDOL [Suspect]
     Active Substance: HALOPERIDOL
     Route: 064
     Dates: start: 201007
  3. AZANTAC [Suspect]
     Active Substance: RANITIDINE HYDROCHLORIDE
     Route: 064
     Dates: start: 201007
  4. MOTILIUM [Suspect]
     Active Substance: DOMPERIDONE
     Route: 064
  5. PRIMPERAN [Suspect]
     Active Substance: METOCLOPRAMIDE HYDROCHLORIDE
     Route: 064
     Dates: start: 201007
  6. DROLEPTAN [Suspect]
     Active Substance: DROPERIDOL
     Route: 064
     Dates: start: 201007
  7. DEXAMETHASONE. [Suspect]
     Active Substance: DEXAMETHASONE
     Route: 064
     Dates: start: 201007
  8. INEXIUM [Suspect]
     Active Substance: ESOMEPRAZOLE
     Route: 064
     Dates: start: 201007
  9. PRIMPERAN [Suspect]
     Active Substance: METOCLOPRAMIDE HYDROCHLORIDE
     Route: 064
     Dates: start: 201006
  10. SOLUPRED [Suspect]
     Active Substance: PREDNISOLONE
     Route: 064
     Dates: start: 201007
  11. VOGALENE [Suspect]
     Active Substance: METOPIMAZINE
     Route: 064
     Dates: start: 201006
  12. VOGALENE [Suspect]
     Active Substance: METOPIMAZINE
     Route: 064
  13. BRICANYL [Suspect]
     Active Substance: TERBUTALINE SULFATE
     Route: 064
  14. LARGACTIL [Suspect]
     Active Substance: CHLORPROMAZINE
     Route: 064
     Dates: start: 201006
  15. LARGACTIL [Suspect]
     Active Substance: CHLORPROMAZINE
     Route: 064
     Dates: start: 201007
  16. NORMACOL [Suspect]
     Active Substance: KARAYA GUM
     Route: 064
     Dates: start: 201007
  17. FORLAX [Suspect]
     Active Substance: POLYETHYLENE GLYCOL 4000
     Route: 064
     Dates: start: 201007
  18. POLYSILANE [Concomitant]
     Route: 064
     Dates: start: 201007

REACTIONS (3)
  - Congenital hydronephrosis [Recovered/Resolved]
  - Pelvic kidney [Not Recovered/Not Resolved]
  - Kidney duplex [Not Recovered/Not Resolved]
